FAERS Safety Report 4786221-7 (Version None)
Quarter: 2005Q3

REPORT INFORMATION
  Report Type: 
  Country: None (occurrence: None)
  Receive Date: 20050930
  Receipt Date: 20050920
  Transmission Date: 20060218
  Serious: Yes (Other)
  Sender: FDA-Public Use
  Company Number: 2005131016

PATIENT
  Age: 57 Year
  Sex: Female
  Weight: 99.3377 kg

DRUGS (8)
  1. LIPITOR [Suspect]
     Indication: BLOOD TRIGLYCERIDES INCREASED
     Dosage: 10 MG (10 MG, 1 IN1 D), ORAL
     Route: 048
     Dates: start: 20050915, end: 20050919
  2. BENADRYL [Suspect]
     Indication: HYPERSENSITIVITY
     Dosage: ORAL
     Route: 048
     Dates: start: 20050919, end: 20050919
  3. ANASTROZOLE (ANASTROZOLE) [Concomitant]
  4. NEXIUM [Concomitant]
  5. ELAVIL [Concomitant]
  6. EFFEXOR [Concomitant]
  7. SYNTHROID [Concomitant]
  8. CHEMOTHERAPY NOS (CHEMOTHERAPY NOS) [Concomitant]

REACTIONS (4)
  - FEELING ABNORMAL [None]
  - HYPERSENSITIVITY [None]
  - PRURITUS [None]
  - URTICARIA [None]
